FAERS Safety Report 8172680-9 (Version None)
Quarter: 2012Q1

REPORT INFORMATION
  Report Type: 
  Country: None (occurrence: None)
  Receive Date: 20120229
  Receipt Date: 20120215
  Transmission Date: 20120608
  Serious: Yes (Other)
  Sender: FDA-Public Use
  Company Number: PL-RANBAXY-2010R1-40202

PATIENT
  Age: 60 Year
  Sex: Female

DRUGS (1)
  1. LORATADINE [Suspect]
     Indication: PRURITUS
     Dosage: 10 MG, QD
     Route: 048

REACTIONS (4)
  - DYSPNOEA [None]
  - URTICARIA [None]
  - CHILLS [None]
  - MALAISE [None]
